FAERS Safety Report 6789497-X (Version None)
Quarter: 2010Q2

REPORT INFORMATION
  Report Type: 
  Country: None (occurrence: None)
  Receive Date: 20100624
  Receipt Date: 20100623
  Transmission Date: 20101027
  Serious: Yes (Hospitalization)
  Sender: FDA-Public Use
  Company Number: US-BIOGENIDEC-2010BI017951

PATIENT
  Age: 77 Year
  Sex: Male

DRUGS (13)
  1. TYSABRI [Suspect]
     Indication: MULTIPLE SCLEROSIS
     Route: 042
     Dates: start: 20071219, end: 20100101
  2. BACLOFEN [Concomitant]
  3. JUVEN [Concomitant]
  4. ALBUTEROL [Concomitant]
  5. VITAMIN C [Concomitant]
     Route: 048
  6. PERIDEX [Concomitant]
     Route: 048
  7. LACTULOSE [Concomitant]
     Indication: CONSTIPATION
  8. NEURONTIN [Concomitant]
  9. RITALIN [Concomitant]
  10. MIRALAX [Concomitant]
  11. COUMADIN [Concomitant]
     Indication: DEEP VEIN THROMBOSIS
  12. LAC-HYDRIN [Concomitant]
     Route: 061
  13. SOAP SUDS ENEMA [Concomitant]

REACTIONS (3)
  - PNEUMONIA ASPIRATION [None]
  - STAPHYLOCOCCAL BACTERAEMIA [None]
  - UPPER GASTROINTESTINAL HAEMORRHAGE [None]
